FAERS Safety Report 15028611 (Version 1)
Quarter: 2018Q2

REPORT INFORMATION
  Report Type: Spontaneous
  Country: FR (occurrence: FR)
  Receive Date: 20180619
  Receipt Date: 20180619
  Transmission Date: 20180711
  Serious: Yes (Other)
  Sender: FDA-Public Use
  Company Number: FR-AUROBINDO-AUR-APL-2018-031513

PATIENT
  Age: 53 Year
  Sex: Female

DRUGS (5)
  1. SERC (BETAHISTINE HYDROCHLORIDE) [Suspect]
     Active Substance: BETAHISTINE HYDROCHLORIDE
     Indication: VERTIGO
     Dosage: UNK
     Route: 048
  2. HYDROCHLOROTHIAZIDE. [Suspect]
     Active Substance: HYDROCHLOROTHIAZIDE
     Indication: HYPERTENSION
     Dosage: UNK
     Route: 048
     Dates: start: 2017
  3. VALSARTAN. [Suspect]
     Active Substance: VALSARTAN
     Indication: HYPERTENSION
     Dosage: UNK
     Route: 048
     Dates: start: 201705
  4. VOLTARENE (DICLOFENAC SODIUM) [Suspect]
     Active Substance: DICLOFENAC SODIUM
     Indication: PAIN
     Dosage: UNK
     Route: 048
  5. NUREFLEX [Suspect]
     Active Substance: IBUPROFEN
     Indication: PAIN
     Dosage: UNK
     Route: 048

REACTIONS (1)
  - Granuloma annulare [Not Recovered/Not Resolved]

NARRATIVE: CASE EVENT DATE: 201708
